FAERS Safety Report 15946864 (Version 1)
Quarter: 2019Q1

REPORT INFORMATION
  Report Type: Spontaneous
  Country: US (occurrence: US)
  Receive Date: 20190212
  Receipt Date: 20190212
  Transmission Date: 20190417
  Serious: No
  Sender: FDA-Public Use
  Company Number: None

PATIENT
  Sex: Female
  Weight: 39.6 kg

DRUGS (1)
  1. METHYLPHENIDATE ER 36MG TABLET [Suspect]
     Active Substance: METHYLPHENIDATE HYDROCHLORIDE
     Indication: ATTENTION DEFICIT/HYPERACTIVITY DISORDER
     Dosage: ?          QUANTITY:1 TABLET(S);?
     Route: 048
     Dates: start: 20181109, end: 20190212

REACTIONS (7)
  - Disturbance in attention [None]
  - Fatigue [None]
  - Increased appetite [None]
  - Anxiety [None]
  - Product substitution issue [None]
  - Anger [None]
  - Drug effect decreased [None]
